FAERS Safety Report 10913239 (Version 1)
Quarter: 2015Q1

REPORT INFORMATION
  Report Type: Spontaneous
  Country: JP (occurrence: None)
  Receive Date: 20150310
  Receipt Date: 20150310
  Transmission Date: 20150721
  Serious: Yes (Hospitalization)
  Sender: FDA-Public Use
  Company Number: JP-ZYDUS-006866

PATIENT
  Age: 40 Year
  Sex: Male

DRUGS (1)
  1. AMIODARONE (AMIODARONE) [Suspect]
     Active Substance: AMIODARONE

REACTIONS (5)
  - Cardiomegaly [None]
  - Cardiac failure acute [None]
  - Thyroiditis [None]
  - Electrocardiogram QRS complex prolonged [None]
  - Hyperthyroidism [None]
